FAERS Safety Report 20346454 (Version 1)
Quarter: 2022Q1

REPORT INFORMATION
  Report Type: Report from Study
  Country: US (occurrence: US)
  Receive Date: 20220118
  Receipt Date: 20220118
  Transmission Date: 20220423
  Serious: Yes (Death, Other)
  Sender: FDA-Public Use
  Company Number: US-BAXTER-2019BAX007472

PATIENT
  Age: 10 Year
  Sex: Male
  Weight: 29.6 kg

DRUGS (4)
  1. CYCLOPHOSPHAMIDE [Suspect]
     Active Substance: CYCLOPHOSPHAMIDE
     Indication: Embryonal rhabdomyosarcoma
     Dosage: 1200 MG/M2 FOR SUBJECTS NO LESS THAN 0.6 M2 OR PER DOSING TABLE FOR SUBJECTS LESS THAN 0.6 M2, OVER
     Route: 042
     Dates: start: 20190302
  2. VINCRISTINE SULFATE [Suspect]
     Active Substance: VINCRISTINE SULFATE
     Indication: Embryonal rhabdomyosarcoma
     Dosage: 1.5 MG/M2 FOR SUBJECTS NO LESS THAN 0.6 M2 (MAX DOSE 2MG) OR PER DOSING TABLE FOR SUBJECTS LESS THAN
     Route: 042
     Dates: start: 20190301, end: 20190313
  3. TEMSIROLIMUS [Suspect]
     Active Substance: TEMSIROLIMUS
     Indication: Embryonal rhabdomyosarcoma
     Dosage: 15 MG/M2 FOR SUBJECTS NO LESS THAN 10 KG (MAX DOSE 25MG) OR 0.5 MG/KG FOR SUBJECTS LESS THAN 10 KG,
     Route: 042
     Dates: start: 20190302, end: 20190313
  4. DACTINOMYCIN [Suspect]
     Active Substance: DACTINOMYCIN
     Indication: Embryonal rhabdomyosarcoma
     Dosage: 0.05MG/KG FOR SUBJECTS NO LESS THAN 14 KG (MAX DOSE 2.5MG) OR PER DOSING TABLE FOR SUBJECTS LESS THA
     Route: 042
     Dates: start: 20190301

REACTIONS (2)
  - Death [Fatal]
  - Stomatitis [Recovered/Resolved]

NARRATIVE: CASE EVENT DATE: 20190313
